FAERS Safety Report 16346170 (Version 1)
Quarter: 2019Q2

REPORT INFORMATION
  Report Type: Spontaneous
  Country: US (occurrence: US)
  Receive Date: 20190523
  Receipt Date: 20190523
  Transmission Date: 20190711
  Serious: Yes (Hospitalization, Other)
  Sender: FDA-Public Use
  Company Number: US-AUROBINDO-AUR-APL-2019-026860

PATIENT

DRUGS (3)
  1. DONEPEZIL. [Suspect]
     Active Substance: DONEPEZIL
     Indication: COGNITIVE DISORDER
     Dosage: 10 MILLIGRAM, ONCE A DAY,AT BEDTIME
     Route: 065
  2. DONEPEZIL. [Suspect]
     Active Substance: DONEPEZIL
     Dosage: 5 MILLIGRAM, ONCE A DAY,MORNING ADMINISTRATION
     Route: 065
  3. DONEPEZIL. [Suspect]
     Active Substance: DONEPEZIL
     Dosage: 5 MILLIGRAM, ONCE A DAY,AT BEDTIME
     Route: 065

REACTIONS (1)
  - Automatism [Recovered/Resolved]
